FAERS Safety Report 9064986 (Version 2)
Quarter: 2013Q1

REPORT INFORMATION
  Report Type: Report from Study
  Country: US (occurrence: US)
  Receive Date: 20130128
  Receipt Date: 20130219
  Transmission Date: 20140127
  Serious: Yes (Hospitalization)
  Sender: FDA-Public Use
  Company Number: US-SANOFI-AVENTIS-2013SA006596

PATIENT
  Sex: 0

DRUGS (2)
  1. RASBURICASE [Suspect]
     Indication: HYPERURICAEMIA
     Dosage: 1ST COURSE
     Route: 065
  2. RASBURICASE [Suspect]
     Indication: HYPERURICAEMIA
     Dosage: 2ND COURSE AFTER 22 DAYS
     Route: 065

REACTIONS (2)
  - Anaphylactic reaction [Unknown]
  - Cardiac arrest [Unknown]
